FAERS Safety Report 9330647 (Version 1)
Quarter: 2013Q2

REPORT INFORMATION
  Report Type: Spontaneous
  Country: FR (occurrence: FR)
  Receive Date: 20130605
  Receipt Date: 20130605
  Transmission Date: 20140414
  Serious: Yes (Life-Threatening)
  Sender: FDA-Public Use
  Company Number: FR-BAYER-2013-067806

PATIENT
  Age: 18 Year
  Sex: Female

DRUGS (1)
  1. GADOVIST [Suspect]
     Dosage: 6 ML, ONCE
     Route: 042
     Dates: start: 20130516, end: 20130516

REACTIONS (4)
  - Anaphylactic shock [Recovered/Resolved]
  - Angioedema [Recovered/Resolved]
  - Dyspnoea [Recovered/Resolved]
  - Tremor [Recovered/Resolved]
